FAERS Safety Report 8443528-X (Version None)
Quarter: 2012Q2

REPORT INFORMATION
  Report Type: 
  Country: None (occurrence: None)
  Receive Date: 20120618
  Receipt Date: 20120612
  Transmission Date: 20120825
  Serious: No
  Sender: FDA-Public Use
  Company Number: US-PFIZER INC-2012069623

PATIENT
  Sex: Male
  Weight: 95.238 kg

DRUGS (2)
  1. VIAGRA [Suspect]
     Indication: ERECTILE DYSFUNCTION
     Dosage: 50 MG, AS NEEDED
     Dates: start: 20100101
  2. VIAGRA [Suspect]
     Dosage: 100 MG, AS NEEDED
     Route: 048

REACTIONS (1)
  - DRUG INEFFECTIVE [None]
